FAERS Safety Report 23763138 (Version 1)
Quarter: 2024Q2

REPORT INFORMATION
  Report Type: Spontaneous
  Country: US (occurrence: None)
  Receive Date: 20240419
  Receipt Date: 20240419
  Transmission Date: 20240716
  Serious: No
  Sender: FDA-Public Use
  Company Number: None

PATIENT
  Sex: Female

DRUGS (5)
  1. TACROLIMUS [Suspect]
     Active Substance: TACROLIMUS
     Indication: Renal transplant
     Dosage: FREQUENCY : 3 TIMES A DAY;?
     Route: 048
     Dates: start: 20240214
  2. FELODIPINE [Concomitant]
     Active Substance: FELODIPINE
  3. OLMESA MEDOX [Concomitant]
  4. TACROLIMUS A [Concomitant]
  5. TRESIBA FLEX [Concomitant]

REACTIONS (2)
  - Transplant [None]
  - Emergency care [None]
